FAERS Safety Report 9757176 (Version 1)
Quarter: 2013Q4

REPORT INFORMATION
  Report Type: Spontaneous
  Country: DE (occurrence: DE)
  Receive Date: 20131213
  Receipt Date: 20131213
  Transmission Date: 20140711
  Serious: Yes (Other)
  Sender: FDA-Public Use
  Company Number: DE-BAXTER-2013BAX049092

PATIENT
  Age: 15 Year
  Sex: Female

DRUGS (4)
  1. KIOVIG (1 G/10 ML) [Suspect]
     Indication: NARCOLEPSY
     Dosage: 1 G/KG/DAY; 3 TIMES TOTAL
     Route: 042
     Dates: start: 201110
  2. KIOVIG (1 G/10 ML) [Suspect]
     Indication: OFF LABEL USE
  3. PANDEMRIX [Concomitant]
     Indication: IMMUNISATION
     Route: 065
     Dates: start: 20091108
  4. MODAFINIL [Concomitant]
     Indication: PRODUCT USED FOR UNKNOWN INDICATION
     Route: 065

REACTIONS (1)
  - Drug ineffective [Unknown]
